FAERS Safety Report 11088228 (Version 2)
Quarter: 2015Q2

REPORT INFORMATION
  Report Type: Spontaneous
  Country: US (occurrence: US)
  Receive Date: 20150504
  Receipt Date: 20150512
  Transmission Date: 20150821
  Serious: Yes (Other)
  Sender: FDA-Public Use
  Company Number: US-PFIZER INC-2015147305

PATIENT
  Sex: Male

DRUGS (1)
  1. FLECTOR [Suspect]
     Active Substance: DICLOFENAC EPOLAMINE
     Indication: JOINT INJURY
     Dosage: UNK
     Route: 062
     Dates: start: 201504

REACTIONS (6)
  - Headache [Not Recovered/Not Resolved]
  - Nausea [Unknown]
  - White blood cell count abnormal [Unknown]
  - Pyrexia [Recovered/Resolved]
  - Vomiting [Unknown]
  - Chills [Unknown]

NARRATIVE: CASE EVENT DATE: 201504
